FAERS Safety Report 8561813 (Version 2)
Quarter: 2012Q4

REPORT INFORMATION
  Report Type: 
  Country: US (occurrence: US)
  Receive Date: 20120515
  Receipt Date: 20121015
  Transmission Date: 20130627
  Serious: Yes (Hospitalization)
  Sender: FDA-Public Use
  Company Number: US-BAYER-2012-045010

PATIENT
  Age: 22 Year
  Sex: Female
  Weight: 63.04 kg

DRUGS (6)
  1. YAZ [Suspect]
     Indication: CONTRACEPTION
     Dosage: UNK
     Dates: start: 200808, end: 200907
  2. YASMIN [Suspect]
     Indication: CONTRACEPTION
     Dosage: UNK
     Dates: start: 200507, end: 200807
  3. YASMIN [Suspect]
     Indication: CONTRACEPTION
     Dosage: UNK
     Dates: start: 201001, end: 201003
  4. OCELLA [Suspect]
     Indication: CONTRACEPTION
     Dosage: UNK
     Dates: start: 200908, end: 200912
  5. COMPAZINE [Concomitant]
     Indication: NAUSEA
     Dosage: as needed every 6 hours
  6. PERCOCET [Concomitant]
     Indication: PAIN
     Dosage: as needed every 4 hours

REACTIONS (8)
  - Gallbladder disorder [None]
  - Injury [None]
  - Abdominal pain [None]
  - Biliary dyskinesia [None]
  - Emotional distress [None]
  - Fear of death [None]
  - Nervousness [None]
  - Depression [None]
